FAERS Safety Report 6811767-7 (Version None)
Quarter: 2010Q2

REPORT INFORMATION
  Report Type: 
  Country: None (occurrence: None)
  Receive Date: 20100628
  Receipt Date: 20100612
  Transmission Date: 20101027
  Serious: Yes (Other)
  Sender: FDA-Public Use
  Company Number: 1000014634

PATIENT
  Age: 27 Year
  Sex: Female
  Weight: 50 kg

DRUGS (6)
  1. ESCITALOPRAM [Suspect]
     Dosage: (140 MG,ONCE), ORAL
     Route: 048
     Dates: start: 20100608, end: 20100608
  2. AMITRIPTYLINE (75 MILLIGRAM, TABLETS) [Suspect]
     Dosage: (2550 MG,ONCE), ORAL
     Route: 048
     Dates: start: 20100608, end: 20100608
  3. LAMUNA (TABLETS) [Suspect]
     Dosage: 44 TABLETS AT MOST (ONCE)
     Dates: start: 20100608, end: 20100608
  4. VOLTAREN [Suspect]
     Dosage: (500 MG,ONCE), ORAL
     Route: 048
     Dates: start: 20100608, end: 20100608
  5. IBUPROFEN (400 MILLIGRAM, TABLETS) [Suspect]
     Dosage: (1200 MG,ONCE), ORAL
     Route: 048
     Dates: start: 20100608, end: 20100608
  6. BUSCOPAN PLUS (TABLETS) [Suspect]
     Dosage: 20 TABLETS AT MOST (ONCE), ORAL
     Route: 048
     Dates: start: 20100608, end: 20100608

REACTIONS (6)
  - DISORIENTATION [None]
  - FAECAL INCONTINENCE [None]
  - MULTIPLE DRUG OVERDOSE INTENTIONAL [None]
  - SUICIDE ATTEMPT [None]
  - URINARY INCONTINENCE [None]
  - VOMITING [None]
